FAERS Safety Report 7529451-3 (Version None)
Quarter: 2011Q2

REPORT INFORMATION
  Report Type: 
  Country: None (occurrence: None)
  Receive Date: 20110531
  Receipt Date: 20110516
  Transmission Date: 20111010
  Serious: Yes (Life-Threatening, Hospitalization)
  Sender: FDA-Public Use
  Company Number: 2011MA005980

PATIENT
  Age: 32 Year
  Sex: Male

DRUGS (1)
  1. ALBUTEROL [Suspect]
     Indication: ASTHMA
     Route: 055

REACTIONS (7)
  - ASTHMA [None]
  - METABOLIC ACIDOSIS [None]
  - ACUTE RESPIRATORY FAILURE [None]
  - RESPIRATORY ACIDOSIS [None]
  - LACTIC ACIDOSIS [None]
  - NO THERAPEUTIC RESPONSE [None]
  - DRUG ABUSE [None]
